FAERS Safety Report 5825866-X (Version None)
Quarter: 2008Q3

REPORT INFORMATION
  Report Type: 
  Country: None (occurrence: None)
  Receive Date: 20080729
  Receipt Date: 20080728
  Transmission Date: 20090109
  Serious: Yes (Hospitalization, Other)
  Sender: FDA-Public Use
  Company Number: US-BRISTOL-MYERS SQUIBB COMPANY-14279970

PATIENT
  Age: 59 Year
  Sex: Male
  Weight: 94 kg

DRUGS (2)
  1. TRAZODONE HCL [Suspect]
     Dates: start: 20080501
  2. ABILIFY [Suspect]

REACTIONS (3)
  - DEPRESSION [None]
  - SUICIDAL IDEATION [None]
  - WEIGHT DECREASED [None]
